FAERS Safety Report 6495714-6 (Version None)
Quarter: 2009Q4

REPORT INFORMATION
  Report Type: 
  Country: None (occurrence: None)
  Receive Date: 20091214
  Receipt Date: 20090804
  Transmission Date: 20100525
  Serious: No
  Sender: FDA-Public Use
  Company Number: US-BRISTOL-MYERS SQUIBB COMPANY-14728281

PATIENT
  Age: 63 Year
  Sex: Female
  Weight: 86 kg

DRUGS (10)
  1. ABILIFY [Suspect]
     Indication: DEPRESSION
     Dosage: 1DOSAGEFORM=1/4 TABS,INTERRUPTED AND RESTARTED IN JUL09
     Dates: start: 20090501
  2. PAMELOR [Suspect]
     Indication: DEPRESSION
  3. AMBIEN CR [Concomitant]
  4. ZANTAC [Concomitant]
     Dosage: XR
  5. VALIUM [Concomitant]
  6. BENICAR [Concomitant]
  7. ELMIRON [Concomitant]
  8. THYROID TAB [Concomitant]
  9. ZETIA [Concomitant]
  10. VICODIN [Concomitant]

REACTIONS (2)
  - FATIGUE [None]
  - NIGHTMARE [None]
